FAERS Safety Report 9234033 (Version 1)
Quarter: 2013Q2

REPORT INFORMATION
  Report Type: Spontaneous
  Country: US (occurrence: US)
  Receive Date: 20130416
  Receipt Date: 20130416
  Transmission Date: 20140414
  Serious: Yes (Hospitalization)
  Sender: FDA-Public Use
  Company Number: US-BAYER-2013-047300

PATIENT
  Age: 55 Year
  Sex: Female

DRUGS (5)
  1. AVELOX [Suspect]
     Dosage: 1 DF, QD
     Route: 048
     Dates: start: 20130404
  2. CLEOCIN [Suspect]
     Dosage: 300 MG, UNK
  3. DIFLUCAN [Concomitant]
     Dosage: UNK
  4. ALBUTEROL INHALER [Concomitant]
  5. XOPENEX [Concomitant]

REACTIONS (1)
  - Abdominal discomfort [None]
